FAERS Safety Report 17072429 (Version 1)
Quarter: 2019Q4

REPORT INFORMATION
  Report Type: Spontaneous
  Country: US (occurrence: US)
  Receive Date: 20191124
  Receipt Date: 20191124
  Transmission Date: 20200122
  Serious: No
  Sender: FDA-Public Use
  Company Number: None

PATIENT
  Age: 56 Year
  Sex: Female
  Weight: 123.75 kg

DRUGS (5)
  1. LORAZEPAM. [Concomitant]
     Active Substance: LORAZEPAM
  2. IRON [Concomitant]
     Active Substance: IRON
  3. OLANZAPINE 5 MG TABLETS MFG VIRTUS - INTERCHANGE FOR ZYPREXA 5 MG TABL [Suspect]
     Active Substance: OLANZAPINE
     Indication: SCHIZOPHRENIA
     Dosage: ?          QUANTITY:1 TABLET(S);?
     Route: 048
     Dates: start: 20191117
  4. OLANZAPINE. [Concomitant]
     Active Substance: OLANZAPINE
  5. VITAMIN B COMPLEX [Concomitant]
     Active Substance: CYANOCOBALAMIN\DEXPANTHENOL\NIACINAMIDE\PYRIDOXINE HYDROCHLORIDE\RIBOFLAVIN 5^-PHOSPHATE SODIUM\THIAMINE HYDROCHLORIDE\VITAMIN B COMPLEX

REACTIONS (6)
  - Hyperacusis [None]
  - Product substitution issue [None]
  - Skin cancer [None]
  - Mental impairment [None]
  - Anger [None]
  - Fall [None]

NARRATIVE: CASE EVENT DATE: 20191117
